FAERS Safety Report 21270428 (Version 2)
Quarter: 2022Q3

REPORT INFORMATION
  Report Type: Spontaneous
  Country: US (occurrence: US)
  Receive Date: 20220830
  Receipt Date: 20220831
  Transmission Date: 20221027
  Serious: No
  Sender: FDA-Public Use
  Company Number: US-PFIZER INC-202201103566

PATIENT
  Age: 63 Year
  Sex: Male
  Weight: 90.72 kg

DRUGS (1)
  1. PAXLOVID [Suspect]
     Active Substance: NIRMATRELVIR\RITONAVIR
     Indication: COVID-19 treatment
     Dosage: 2 TABLETS ARE 150MG, SO 300MG ALL TOGETHER, THEN 1 TABLET IS 100MG)
     Route: 048
     Dates: start: 20220825, end: 20220825

REACTIONS (10)
  - Urticaria [Unknown]
  - Skin plaque [Unknown]
  - Lip oedema [Unknown]
  - Lip blister [Recovered/Resolved]
  - Oropharyngeal pain [Not Recovered/Not Resolved]
  - Pharyngeal swelling [Not Recovered/Not Resolved]
  - Eye swelling [Recovering/Resolving]
  - Throat irritation [Unknown]
  - Rhinalgia [Unknown]
  - Rhinorrhoea [Unknown]

NARRATIVE: CASE EVENT DATE: 20220825
